FAERS Safety Report 11115558 (Version 1)
Quarter: 2015Q2

REPORT INFORMATION
  Report Type: Spontaneous
  Country: US (occurrence: None)
  Receive Date: 20150513
  Receipt Date: 20150513
  Transmission Date: 20150821
  Serious: Yes (Hospitalization)
  Sender: FDA-Public Use
  Company Number: 15AE021

PATIENT
  Age: 7 Year
  Sex: Female

DRUGS (2)
  1. EQUATE CETIRIZINE HCI 10MG CHEWABLE TABLETS [Suspect]
     Active Substance: CETIRIZINE HYDROCHLORIDE
     Indication: SNEEZING
     Dosage: 1 TABLET
     Dates: start: 20150419
  2. EQUATE CETIRIZINE HCI 10MG CHEWABLE TABLETS [Suspect]
     Active Substance: CETIRIZINE HYDROCHLORIDE
     Indication: RHINORRHOEA
     Dosage: 1 TABLET
     Dates: start: 20150419

REACTIONS (4)
  - Syncope [None]
  - Abdominal pain upper [None]
  - Eye movement disorder [None]
  - Fatigue [None]

NARRATIVE: CASE EVENT DATE: 20150419
